FAERS Safety Report 8579154-1 (Version None)
Quarter: 2012Q2

REPORT INFORMATION
  Report Type: 
  Country: None (occurrence: None)
  Receive Date: 20120423
  Receipt Date: 20100628
  Transmission Date: 20120825
  Serious: Yes (Other)
  Sender: FDA-Public Use
  Company Number: PHHY2010US40269

PATIENT
  Age: 89 Year
  Sex: Female
  Weight: 67 kg

DRUGS (7)
  1. EXJADE [Suspect]
     Indication: HAEMATOPOIETIC NEOPLASM
     Dosage: 1000 MG, QD, ORAL, 15 MG/KG, ORAL
     Route: 048
     Dates: start: 20100109
  2. EXJADE [Suspect]
     Indication: CHELATION THERAPY
     Dosage: 1000 MG, QD, ORAL, 15 MG/KG, ORAL
     Route: 048
     Dates: start: 20100109
  3. EXJADE [Suspect]
     Indication: LYMPHATIC SYSTEM NEOPLASM
     Dosage: 1000 MG, QD, ORAL, 15 MG/KG, ORAL
     Route: 048
     Dates: start: 20100109
  4. EXJADE [Suspect]
     Indication: HAEMATOPOIETIC NEOPLASM
     Dosage: 1000 MG, QD, ORAL, 15 MG/KG, ORAL
     Route: 048
     Dates: end: 20100501
  5. EXJADE [Suspect]
     Indication: CHELATION THERAPY
     Dosage: 1000 MG, QD, ORAL, 15 MG/KG, ORAL
     Route: 048
     Dates: end: 20100501
  6. EXJADE [Suspect]
     Indication: LYMPHATIC SYSTEM NEOPLASM
     Dosage: 1000 MG, QD, ORAL, 15 MG/KG, ORAL
     Route: 048
     Dates: end: 20100501
  7. LASIX [Concomitant]

REACTIONS (1)
  - RENAL DISORDER [None]
